FAERS Safety Report 5446236-2 (Version None)
Quarter: 2007Q3

REPORT INFORMATION
  Report Type: 
  Country: None (occurrence: None)
  Receive Date: 20070907
  Receipt Date: 20070829
  Transmission Date: 20080115
  Serious: Yes (Other)
  Sender: FDA-Public Use
  Company Number: PHHO2007MX14331

PATIENT

DRUGS (2)
  1. DIOVAN HCT [Suspect]
     Indication: HYPERTENSION
     Dosage: 160/12.5 MG PER DAY
     Route: 048
     Dates: start: 20070801
  2. ASPIRIN [Concomitant]
     Dosage: UNK, UNK

REACTIONS (5)
  - ANXIETY [None]
  - DEPRESSED MOOD [None]
  - HEADACHE [None]
  - HYPERTENSION [None]
  - TINNITUS [None]
